FAERS Safety Report 21100026 (Version 1)
Quarter: 2022Q3

REPORT INFORMATION
  Report Type: Spontaneous
  Country: JP (occurrence: JP)
  Receive Date: 20220719
  Receipt Date: 20220719
  Transmission Date: 20221027
  Serious: Yes (Other)
  Sender: FDA-Public Use
  Company Number: JP-NOVARTISPH-NVSJ2022JP094248

PATIENT
  Sex: Female

DRUGS (3)
  1. GLIVEC [Suspect]
     Active Substance: IMATINIB MESYLATE
     Indication: Gastrointestinal stromal tumour
     Dosage: UNK
     Route: 048
  2. GLIVEC [Suspect]
     Active Substance: IMATINIB MESYLATE
     Dosage: UNK
     Route: 048
  3. GLIVEC [Suspect]
     Active Substance: IMATINIB MESYLATE
     Dosage: UNK
     Route: 048

REACTIONS (8)
  - Blood calcium decreased [Unknown]
  - Ocular hyperaemia [Unknown]
  - Periorbital pain [Unknown]
  - Gingival blister [Unknown]
  - Gingival bleeding [Unknown]
  - Gingival pain [Unknown]
  - Gingivitis [Unknown]
  - White blood cell count decreased [Unknown]
